FAERS Safety Report 14923809 (Version 1)
Quarter: 2018Q2

REPORT INFORMATION
  Report Type: Report from Study
  Country: AU (occurrence: AU)
  Receive Date: 20180522
  Receipt Date: 20180522
  Transmission Date: 20180711
  Serious: Yes (Hospitalization, Other)
  Sender: FDA-Public Use
  Company Number: AU-TOLMAR, INC.-2018AU005185

PATIENT

DRUGS (1)
  1. ELIGARD [Suspect]
     Active Substance: LEUPROLIDE ACETATE
     Indication: PROSTATE CANCER
     Dosage: 22.5 MG, Q3MONTHS
     Route: 058
     Dates: start: 20171113

REACTIONS (4)
  - Fall [Unknown]
  - Decreased appetite [Unknown]
  - Muscle atrophy [Unknown]
  - Laceration [Unknown]
